FAERS Safety Report 22225714 (Version 5)
Quarter: 2023Q2

REPORT INFORMATION
  Report Type: Spontaneous
  Country: FR (occurrence: FR)
  Receive Date: 20230418
  Receipt Date: 20230630
  Transmission Date: 20230722
  Serious: Yes (Life-Threatening, Other)
  Sender: FDA-Public Use
  Company Number: FR-JAZZ PHARMACEUTICALS-2023-FR-008641

PATIENT
  Age: 23 Year
  Sex: Female
  Weight: 62 kg

DRUGS (6)
  1. EPIDIOLEX [Suspect]
     Active Substance: CANNABIDIOL
     Indication: Partial seizures
     Dosage: 0.62 MILLILITER, BID
     Route: 048
     Dates: start: 20230125
  2. EPIDIOLEX [Suspect]
     Active Substance: CANNABIDIOL
     Dosage: 1.24 MILLILITER, BID
     Route: 048
  3. EPIDIOLEX [Suspect]
     Active Substance: CANNABIDIOL
     Dosage: 1.86 MILLILITER, BID
     Route: 048
     Dates: start: 20230217
  4. EPIDIOLEX [Suspect]
     Active Substance: CANNABIDIOL
     Dosage: 2.48 MILLILITER, BID
     Route: 048
     Dates: start: 20230224
  5. CLOBAZAM [Concomitant]
     Active Substance: CLOBAZAM
     Indication: Epilepsy
     Dosage: 5 MILLIGRAM, QD
     Route: 048
     Dates: start: 20220301
  6. LYRICA [Concomitant]
     Active Substance: PREGABALIN
     Indication: Epilepsy
     Dosage: 250 MILLIGRAM, BID
     Dates: start: 20210702

REACTIONS (15)
  - Suicide attempt [Recovered/Resolved]
  - Seizure [Recovered/Resolved]
  - Condition aggravated [Recovered/Resolved]
  - Abdominal pain [Recovered/Resolved]
  - Flatulence [Recovered/Resolved]
  - Asthenia [Recovered/Resolved]
  - Dry skin [Recovered/Resolved]
  - Confusional state [Recovered/Resolved]
  - Disorientation [Recovered/Resolved]
  - Faeces discoloured [Recovered/Resolved]
  - Nausea [Recovered/Resolved]
  - Affective disorder [Recovered/Resolved]
  - Depressed mood [Recovered/Resolved]
  - Mental disorder [Recovered/Resolved]
  - Off label use [Unknown]

NARRATIVE: CASE EVENT DATE: 20230125
